FAERS Safety Report 18229311 (Version 1)
Quarter: 2020Q3

REPORT INFORMATION
  Report Type: Spontaneous
  Country: US (occurrence: US)
  Receive Date: 20200903
  Receipt Date: 20200903
  Transmission Date: 20201103
  Serious: No
  Sender: FDA-Public Use
  Company Number: US-PERRIGO-20US006958

PATIENT
  Age: 58 Year
  Sex: Female
  Weight: 81.63 kg

DRUGS (19)
  1. TOPIRAMATE. [Concomitant]
     Active Substance: TOPIRAMATE
     Indication: MIGRAINE
     Dosage: UNK
     Route: 065
  2. SPIRONOLACTONE. [Concomitant]
     Active Substance: SPIRONOLACTONE
     Indication: HORMONE LEVEL ABNORMAL
     Dosage: UNK
     Route: 065
     Dates: start: 2019
  3. VALACYCLOVIR [Concomitant]
     Active Substance: VALACYCLOVIR HYDROCHLORIDE
     Indication: HERPES VIRUS INFECTION
     Dosage: UNK
     Route: 065
  4. VITAMIN B12 [Concomitant]
     Active Substance: CYANOCOBALAMIN
     Indication: SUPPLEMENTATION THERAPY
     Dosage: 5,000 MCG, UNKNOWN
     Route: 065
  5. GLYCOLIC ACID [Concomitant]
     Active Substance: GLYCOLIC ACID
     Indication: SUPPLEMENTATION THERAPY
     Dosage: UNK
     Route: 065
     Dates: start: 202005
  6. DHEA [Concomitant]
     Active Substance: PRASTERONE
     Indication: HORMONE LEVEL ABNORMAL
     Dosage: UNK
     Route: 065
     Dates: start: 2019
  7. VITAMIN D3 [Concomitant]
     Active Substance: CHOLECALCIFEROL
     Indication: SUPPLEMENTATION THERAPY
     Dosage: UNK
     Route: 065
  8. TURMERIC                           /01079602/ [Concomitant]
     Active Substance: HERBALS\TURMERIC
     Indication: SUPPLEMENTATION THERAPY
     Dosage: 500 MG, UNKNOWN
     Route: 065
  9. EVAMIST [Suspect]
     Active Substance: ESTRADIOL
     Indication: HORMONE REPLACEMENT THERAPY
     Dosage: 1.53 MG, QD
     Route: 062
     Dates: start: 201911, end: 202003
  10. IODINE. [Concomitant]
     Active Substance: IODINE
     Indication: SUPPLEMENTATION THERAPY
     Dosage: 12.5 MG, UNKNOWN
     Route: 065
     Dates: start: 2019
  11. IRON [Concomitant]
     Active Substance: IRON
     Indication: SUPPLEMENTATION THERAPY
     Dosage: 27 MG, UNKNOWN
     Route: 065
     Dates: start: 2019
  12. ARMOUR THYROID [Concomitant]
     Active Substance: THYROID, PORCINE
     Indication: HYPOTHYROIDISM
     Dosage: UNK
     Route: 065
  13. PROGESTERONE. [Concomitant]
     Active Substance: PROGESTERONE
     Indication: HORMONE LEVEL ABNORMAL
     Dosage: UNK
     Route: 065
     Dates: start: 2019
  14. BIOTIN [Concomitant]
     Active Substance: BIOTIN
     Indication: SUPPLEMENTATION THERAPY
     Dosage: 10,000 MCG, UNKNOWN
     Route: 065
  15. PROBIOTIC                          /06395501/ [Concomitant]
     Active Substance: BIFIDOBACTERIUM ANIMALIS LACTIS
     Indication: SUPPLEMENTATION THERAPY
     Dosage: UNK
     Route: 065
  16. GLIPIZIDE. [Concomitant]
     Active Substance: GLIPIZIDE
     Indication: TYPE 2 DIABETES MELLITUS
     Dosage: UNK
     Route: 065
  17. FISH OIL [Concomitant]
     Active Substance: FISH OIL
     Indication: SUPPLEMENTATION THERAPY
     Dosage: 950 MG, UNKNOWNUNK
     Route: 065
     Dates: start: 2019
  18. EVAMIST [Suspect]
     Active Substance: ESTRADIOL
     Dosage: 1.53 MG OR UNKNOWN, QD
     Route: 062
     Dates: start: 202003
  19. ALLEGRA [Concomitant]
     Active Substance: FEXOFENADINE HYDROCHLORIDE
     Indication: HYPERSENSITIVITY
     Dosage: UNK
     Route: 065

REACTIONS (2)
  - Incorrect dose administered [Not Recovered/Not Resolved]
  - Rash [Not Recovered/Not Resolved]

NARRATIVE: CASE EVENT DATE: 202003
